FAERS Safety Report 4285335-8 (Version None)
Quarter: 2004Q1

REPORT INFORMATION
  Report Type: 
  Country: None (occurrence: None)
  Receive Date: 20040203
  Receipt Date: 20040203
  Transmission Date: 20041129
  Serious: Yes (Life-Threatening, Hospitalization)
  Sender: FDA-Public Use
  Company Number: None

PATIENT
  Age: 65 Year
  Sex: Male
  Weight: 70 kg

DRUGS (8)
  1. AMIODARONE HCL [Suspect]
     Indication: ATRIAL FIBRILLATION
     Dosage: 200 MG PO QD [X MONTHS]
     Route: 048
  2. APAP TAB [Concomitant]
  3. MORPHINE [Concomitant]
  4. RANITIDINE [Concomitant]
  5. METRONIDAZOLE [Concomitant]
  6. HYDROMORPHONE HCL [Concomitant]
  7. CEFEPIME [Concomitant]
  8. AZITHROMYCIN [Concomitant]

REACTIONS (5)
  - ACUTE RESPIRATORY DISTRESS SYNDROME [None]
  - PLEURAL EFFUSION [None]
  - PNEUMONIA [None]
  - PULMONARY TOXICITY [None]
  - RESPIRATORY FAILURE [None]
